FAERS Safety Report 15838223 (Version 1)
Quarter: 2019Q1

REPORT INFORMATION
  Report Type: Spontaneous
  Country: US (occurrence: US)
  Receive Date: 20190117
  Receipt Date: 20190117
  Transmission Date: 20190417
  Serious: Yes (Hospitalization, Disabling, Other)
  Sender: FDA-Public Use
  Company Number: US-JNJFOC-20190119110

PATIENT
  Age: 55 Year
  Sex: Female

DRUGS (1)
  1. INVOKANA [Suspect]
     Active Substance: CANAGLIFLOZIN
     Indication: TYPE 2 DIABETES MELLITUS
     Route: 048
     Dates: start: 20170213, end: 201802

REACTIONS (7)
  - Diabetic foot infection [Recovering/Resolving]
  - Diabetic ketoacidosis [Recovered/Resolved]
  - Osteomyelitis [Recovering/Resolving]
  - Limb amputation [Unknown]
  - Leg amputation [Unknown]
  - Gangrene [Recovering/Resolving]
  - Acute kidney injury [Recovered/Resolved]

NARRATIVE: CASE EVENT DATE: 201702
